FAERS Safety Report 9778500 (Version 8)
Quarter: 2015Q1

REPORT INFORMATION
  Report Type: Report from Study
  Country: FR (occurrence: FR)
  Receive Date: 20131223
  Receipt Date: 20150219
  Transmission Date: 20150721
  Serious: Yes (Other)
  Sender: FDA-Public Use
  Company Number: FR-VERTEX PHARMACEUTICALS INC-2013-011810

PATIENT
  Age: 19 Year
  Sex: Female
  Weight: 46 kg

DRUGS (17)
  1. VX-809 FDC [Suspect]
     Active Substance: IVACAFTOR
     Indication: CYSTIC FIBROSIS
     Dosage: 400 MG, Q12H
     Route: 048
     Dates: start: 20130826, end: 20131102
  2. DELURSAN [Concomitant]
     Active Substance: URSODIOL
     Indication: ILEOSTOMY
     Dosage: UNK
     Route: 048
  3. CREON [Concomitant]
     Active Substance: PANCRELIPASE AMYLASE\PANCRELIPASE LIPASE\PANCRELIPASE PROTEASE
     Indication: PANCREATIC INSUFFICIENCY
     Dosage: UNK
     Route: 048
     Dates: start: 199406
  4. SPASFON [Concomitant]
     Active Substance: PHLOROGLUCINOL
     Indication: ABDOMINAL PAIN
     Dosage: UNK
     Route: 048
     Dates: start: 20130918, end: 20130918
  5. DOLIPRANE [Concomitant]
     Active Substance: ACETAMINOPHEN
     Indication: ABDOMINAL PAIN
     Dosage: UNK
     Route: 048
     Dates: start: 20131002, end: 20131002
  6. VAXIGRIP [Concomitant]
     Active Substance: INFLUENZA VIRUS VACCINE
     Indication: INFLUENZA IMMUNISATION
     Dosage: UNK
     Route: 030
     Dates: start: 20131023, end: 20131023
  7. SPASFON [Concomitant]
     Active Substance: PHLOROGLUCINOL
     Dosage: UNK
     Dates: start: 201311
  8. PASSIFLORA EXTRACT [Concomitant]
     Indication: ANXIETY
     Dosage: UNK
     Route: 048
     Dates: start: 20131014, end: 20131020
  9. VX-770 FDC [Suspect]
     Active Substance: IVACAFTOR
     Indication: CYSTIC FIBROSIS
     Dosage: 250 MG, Q12H
     Route: 048
     Dates: start: 20130826, end: 20131102
  10. DERMORELLE [Concomitant]
     Indication: PANCREATIC INSUFFICIENCY
     Route: 048
  11. TOCO [Concomitant]
     Active Substance: UNSPECIFIED INGREDIENT
     Indication: PANCREATIC INSUFFICIENCY
     Dosage: UNK
     Route: 048
  12. NACL [Concomitant]
     Active Substance: SODIUM CHLORIDE
     Indication: ELECTROLYTE SUBSTITUTION THERAPY
     Dosage: UNK
     Route: 048
  13. SACCHAROMYCES [Concomitant]
     Active Substance: SACCHAROMYCES CEREVISIAE
     Indication: GASTROOESOPHAGEAL REFLUX DISEASE
     Dosage: UNK
     Route: 048
     Dates: start: 20130903, end: 20130903
  14. SACCHAROMYCES [Concomitant]
     Active Substance: SACCHAROMYCES CEREVISIAE
     Dosage: UNK
     Route: 048
     Dates: start: 20130906, end: 20130906
  15. UVESTEROL [Concomitant]
     Indication: VITAMIN D DEFICIENCY
     Dosage: UNK
     Route: 048
  16. DELURSAN [Concomitant]
     Active Substance: URSODIOL
     Indication: LIVER DISORDER
  17. PARACETAMOL [Concomitant]
     Active Substance: ACETAMINOPHEN
     Indication: ABDOMINAL PAIN
     Dosage: UNK
     Dates: start: 201311

REACTIONS (1)
  - Blood creatine phosphokinase increased [Not Recovered/Not Resolved]

NARRATIVE: CASE EVENT DATE: 20131216
